FAERS Safety Report 25155495 (Version 1)
Quarter: 2025Q2

REPORT INFORMATION
  Report Type: Other
  Country: JP (occurrence: JP)
  Receive Date: 20250403
  Receipt Date: 20250403
  Transmission Date: 20250717
  Serious: Yes (Death)
  Sender: RENATA LIMITED
  Company Number: JP-Renata Limited-2174203

PATIENT
  Sex: Male

DRUGS (5)
  1. RISPERIDONE [Suspect]
     Active Substance: RISPERIDONE
     Indication: Product used for unknown indication
  2. FLUVOXAMINE MALEATE [Suspect]
     Active Substance: FLUVOXAMINE MALEATE
  3. DIAZEPAM [Suspect]
     Active Substance: DIAZEPAM
  4. FLUNITRAZEPAM [Suspect]
     Active Substance: FLUNITRAZEPAM
  5. ETIZOLAM [Suspect]
     Active Substance: ETIZOLAM

REACTIONS (1)
  - Overdose [Fatal]
